FAERS Safety Report 6127536-X (Version None)
Quarter: 2009Q1

REPORT INFORMATION
  Report Type: 
  Country: None (occurrence: None)
  Receive Date: 20090319
  Receipt Date: 20090305
  Transmission Date: 20090719
  Serious: Yes (Other)
  Sender: FDA-Public Use
  Company Number: 2009AL001331

PATIENT
  Age: 69 Year
  Sex: Female
  Weight: 87 kg

DRUGS (7)
  1. PAREGORIC LIQUID USP (ALPHARMA) (PAREGORIC LIQUID USP (ALPHARMA)) [Suspect]
  2. FENTANYL TRANSDERMAL SYSTEM [Suspect]
     Dosage: 100 MCG/HOUR
  3. CYCLOPHOSPHAMIDE [Concomitant]
  4. VELCADE [Concomitant]
  5. DECADRON [Concomitant]
  6. LEVOTHYROXINE [Concomitant]
  7. VELCADE [Concomitant]

REACTIONS (8)
  - ABDOMINAL PAIN UPPER [None]
  - DRUG WITHDRAWAL SYNDROME [None]
  - FEELING COLD [None]
  - MUSCLE TWITCHING [None]
  - PRURITUS [None]
  - RASH ERYTHEMATOUS [None]
  - RASH PAPULAR [None]
  - TREMOR [None]
